FAERS Safety Report 15762884 (Version 1)
Quarter: 2018Q4

REPORT INFORMATION
  Report Type: Spontaneous
  Country: US (occurrence: US)
  Receive Date: 20181226
  Receipt Date: 20181226
  Transmission Date: 20190205
  Serious: Yes (Other)
  Sender: FDA-Public Use
  Company Number: US-ABBVIE-18P-163-2604822-00

PATIENT
  Sex: Female

DRUGS (1)
  1. TESTOSTERONE. [Suspect]
     Active Substance: TESTOSTERONE
     Indication: MENOPAUSAL DISORDER
     Route: 065

REACTIONS (13)
  - Pulmonary embolism [Unknown]
  - Acne [Unknown]
  - Product use issue [Unknown]
  - Gallbladder disorder [Unknown]
  - Cerebrovascular accident [Unknown]
  - Vaginal haemorrhage [Unknown]
  - Breast cancer [Unknown]
  - Enlarged clitoris [Unknown]
  - Anger [Unknown]
  - Hair disorder [Unknown]
  - Breast tenderness [Unknown]
  - Endometrial cancer [Unknown]
  - Thrombosis [Unknown]
